FAERS Safety Report 9892448 (Version 1)
Quarter: 2014Q1

REPORT INFORMATION
  Report Type: Spontaneous
  Country: US (occurrence: US)
  Receive Date: 20140212
  Receipt Date: 20140212
  Transmission Date: 20141002
  Serious: Yes (Other)
  Sender: FDA-Public Use
  Company Number: US-ACTAVIS-2014-02328

PATIENT
  Age: 39 Year
  Sex: Female
  Weight: 86 kg

DRUGS (4)
  1. OXYCODONE-ACETAMINOPHEN 10-325 [Suspect]
     Indication: BACK PAIN
     Dosage: 4-6 PER DAY, PRN
     Route: 048
     Dates: start: 20140203
  2. ROXICON [Concomitant]
     Indication: BACK PAIN
     Dosage: 15 MG, UP TO 2 PER DAY PRN
     Route: 048
  3. PROAIR                             /00139502/ [Concomitant]
     Indication: ASTHMA
     Dosage: UNK
     Dates: start: 2013
  4. LOVENOX [Concomitant]
     Indication: PROTEIN S DEFICIENCY
     Dosage: 100 MG, BID

REACTIONS (3)
  - Pulmonary embolism [Unknown]
  - Drug ineffective [Not Recovered/Not Resolved]
  - Feeling abnormal [Not Recovered/Not Resolved]
